FAERS Safety Report 8791550 (Version 3)
Quarter: 2013Q1

REPORT INFORMATION
  Report Type: Spontaneous
  Country: ES (occurrence: None)
  Receive Date: 20120913
  Receipt Date: 20130130
  Transmission Date: 20140127
  Serious: Yes (Hospitalization, Disabling, Other)
  Sender: FDA-Public Use
  Company Number: 2012MPI00398

PATIENT
  Age: 22 Year
  Sex: Male

DRUGS (2)
  1. BRENTUXIMAB VEDOTIN [Suspect]
     Indication: HODGKIN^S DISEASE
     Route: 042
     Dates: start: 20120319, end: 20120625
  2. FILGRASTIM (FILGRASTIM) [Concomitant]

REACTIONS (5)
  - Refractory anaemia with an excess of blasts [None]
  - Pancytopenia [None]
  - Stem cell transplant [None]
  - Myelodysplastic syndrome [None]
  - Second primary malignancy [None]
